FAERS Safety Report 8614633-X (Version None)
Quarter: 2012Q3

REPORT INFORMATION
  Report Type: 
  Country: None (occurrence: None)
  Receive Date: 20120823
  Receipt Date: 20120821
  Transmission Date: 20120928
  Serious: Yes (Hospitalization)
  Sender: FDA-Public Use
  Company Number: PHHY2012DE060053

PATIENT
  Sex: Male
  Weight: 72 kg

DRUGS (12)
  1. SANDOSTATIN LAR [Suspect]
     Indication: NEUROENDOCRINE TUMOUR
     Dosage: 30 MG,EVERY 4 WEEKS
     Route: 030
     Dates: start: 20051001
  2. PEGINTRON ^ESSEX CHEMIE^ [Concomitant]
     Dosage: 50 UG, QW
     Route: 058
  3. AUGENTROPFEN N [Concomitant]
     Dosage: 1-1-1
  4. FERRO SANOL COMP [Concomitant]
     Dosage: 100 MG, 1-0-1
     Route: 048
  5. SANDOSTATIN LAR [Suspect]
     Dosage: 30 MG, EVERY 4 WEEKS
     Route: 030
     Dates: start: 20120625
  6. FALITHROM ^FAHLBERG^ [Concomitant]
     Dosage: ? AT NIGHT, NOT ON WEDNESDAY AND SATURDAY
     Route: 048
  7. COSOPT [Concomitant]
     Dosage: 1-0-1
  8. SANDOSTATIN LAR [Suspect]
     Dosage: 30 MG, EVERY 4 WEEKS
     Route: 030
     Dates: start: 20120709
  9. ISOPTO-BIOTIC [Concomitant]
     Dosage: 1-1-1
     Dates: start: 20120625
  10. PANTOPRAZOLE [Concomitant]
     Dosage: 40 MG, PER DAY
     Route: 048
  11. LUMIGAN [Concomitant]
  12. PANTHENOL [Concomitant]

REACTIONS (2)
  - ABDOMINAL PAIN [None]
  - LOSS OF CONSCIOUSNESS [None]
